FAERS Safety Report 4477796-6 (Version None)
Quarter: 2004Q4

REPORT INFORMATION
  Report Type: 
  Country: None (occurrence: None)
  Receive Date: 20041018
  Receipt Date: 20030707
  Transmission Date: 20050328
  Serious: Yes (Hospitalization)
  Sender: FDA-Public Use
  Company Number: FR-MERCK-0307FRA00013

PATIENT
  Age: 39 Year
  Sex: Male
  Weight: 61 kg

DRUGS (7)
  1. CLINDAMYCIN HYDROCHLORIDE [Concomitant]
     Route: 048
  2. DIDANOSINE [Suspect]
     Indication: HIV INFECTION
     Route: 048
     Dates: end: 20030414
  3. CRIXIVAN [Suspect]
     Indication: HIV INFECTION
     Route: 048
     Dates: start: 20020501, end: 20030414
  4. CRIXIVAN [Suspect]
     Route: 048
     Dates: start: 20030715
  5. PENTAMIDINE ISETIONATE [Concomitant]
     Route: 055
  6. PYRIMETHAMINE [Concomitant]
     Indication: CEREBRAL TOXOPLASMOSIS
     Route: 048
  7. STAVUDINE [Suspect]
     Indication: HIV INFECTION
     Route: 048
     Dates: end: 20030414

REACTIONS (3)
  - ABDOMINAL PAIN [None]
  - ASTHENIA [None]
  - BLOOD LACTIC ACID INCREASED [None]
